FAERS Safety Report 4762438-2 (Version None)
Quarter: 2005Q3

REPORT INFORMATION
  Report Type: 
  Country: None (occurrence: None)
  Receive Date: 20050901
  Receipt Date: 20050526
  Transmission Date: 20060218
  Serious: No
  Sender: FDA-Public Use
  Company Number: 200511074BWH

PATIENT
  Sex: Male

DRUGS (3)
  1. LEVITRA [Suspect]
     Dosage: 10 MG, TOTAL DAILY, ORAL; 10 MG, TOTAL DAILY, ORAL
     Route: 048
     Dates: start: 20050519
  2. LEVITRA [Suspect]
     Dosage: 10 MG, TOTAL DAILY, ORAL; 10 MG, TOTAL DAILY, ORAL
     Route: 048
     Dates: start: 20050522
  3. LEVITRA [Suspect]

REACTIONS (3)
  - BONE PAIN [None]
  - DYSPNOEA [None]
  - HEADACHE [None]
